FAERS Safety Report 7602787-3 (Version None)
Quarter: 2011Q2

REPORT INFORMATION
  Report Type: 
  Country: None (occurrence: None)
  Receive Date: 20110630
  Receipt Date: 20110615
  Transmission Date: 20111010
  Serious: Yes (Other)
  Sender: FDA-Public Use
  Company Number: 2011P1007182

PATIENT
  Age: 8 Year
  Sex: Female

DRUGS (1)
  1. OVIDE [Suspect]
     Indication: LICE INFESTATION

REACTIONS (1)
  - ALOPECIA AREATA [None]
